FAERS Safety Report 6348480-9 (Version None)
Quarter: 2009Q3

REPORT INFORMATION
  Report Type: 
  Country: None (occurrence: None)
  Receive Date: 20090911
  Receipt Date: 20080513
  Transmission Date: 20100115
  Serious: Yes (Other)
  Sender: FDA-Public Use
  Company Number: US-ASTRAZENECA-2007UW21511

PATIENT
  Age: 453 Month
  Sex: Female

DRUGS (11)
  1. SEROQUEL [Suspect]
     Indication: DEPRESSION
     Dosage: 100MG-300MG
     Route: 048
     Dates: start: 20030301, end: 20030701
  2. SEROQUEL [Suspect]
     Indication: BIPOLAR DISORDER
     Dosage: 100MG-300MG
     Route: 048
     Dates: start: 20030301, end: 20030701
  3. ALLOPURINOL [Concomitant]
     Indication: GOUT
     Route: 048
     Dates: start: 20031013
  4. COLCHICINE [Concomitant]
     Indication: GOUT
     Dates: start: 20031013
  5. LORTAB [Concomitant]
     Dosage: 7.5/500 MG 1 PO EVERY 4 TO 6 HR
     Dates: start: 20031013
  6. GLUCOPHAGE [Concomitant]
     Dates: start: 20031013
  7. AVANDAMET [Concomitant]
     Dosage: 2/500, 2.5/500 TO BE TAKEN BID
     Dates: start: 20040511
  8. SULAR [Concomitant]
     Indication: HYPERTENSION
     Dates: start: 20041018
  9. METHOTREXATE [Concomitant]
     Dates: start: 20041018
  10. HYZAAR [Concomitant]
     Indication: HYPERTENSION
     Dosage: 50/12.5 MG EVERY DAY
     Dates: start: 20041206
  11. CRESTOR [Concomitant]
     Indication: BLOOD CHOLESTEROL

REACTIONS (6)
  - DIABETES MELLITUS [None]
  - DIABETES MELLITUS INADEQUATE CONTROL [None]
  - DIABETIC COMA [None]
  - DIABETIC NEUROPATHY [None]
  - TYPE 2 DIABETES MELLITUS [None]
  - WEIGHT DECREASED [None]
